FAERS Safety Report 4570513-0 (Version None)
Quarter: 2005Q1

REPORT INFORMATION
  Report Type: 
  Country: None (occurrence: None)
  Receive Date: 20050204
  Receipt Date: 20040921
  Transmission Date: 20050727
  Serious: Yes (Hospitalization, Other)
  Sender: FDA-Public Use
  Company Number: PHRM2004FR02879

PATIENT
  Age: 57 Year
  Sex: Female

DRUGS (1)
  1. LESCOL [Suspect]
     Dosage: 20 MG, UNK
     Route: 048
     Dates: start: 20040515, end: 20040815

REACTIONS (2)
  - MUSCLE STRAIN [None]
  - TENDON RUPTURE [None]
